FAERS Safety Report 7422840-7 (Version None)
Quarter: 2011Q2

REPORT INFORMATION
  Report Type: 
  Country: None (occurrence: None)
  Receive Date: 20110419
  Receipt Date: 20090520
  Transmission Date: 20111010
  Serious: Yes (Death, Other)
  Sender: FDA-Public Use
  Company Number: US-BAYER-200915518NA

PATIENT
  Age: 65 Year
  Sex: Male
  Weight: 88.889 kg

DRUGS (13)
  1. TRASYLOL [Suspect]
     Indication: CORONARY ARTERY BYPASS
     Dosage: 200 ML, PUMP PRIME
     Route: 042
     Dates: start: 19971120, end: 19971120
  2. TENORMIN [Concomitant]
  3. TRASYLOL [Suspect]
     Dosage: 200 ML LOADING, ONCE
     Route: 042
     Dates: start: 19971120, end: 19971120
  4. NIPRIDE [Concomitant]
     Dosage: UNK
     Route: 042
     Dates: start: 19971120, end: 19971120
  5. PAPAVERINE [Concomitant]
     Dosage: 60 MG, UNK
     Dates: start: 19971120, end: 19971120
  6. TRASYLOL [Suspect]
     Dosage: 50 ML/HR, UNK
     Route: 042
     Dates: start: 19971120, end: 19971120
  7. HEPARIN [Concomitant]
     Dosage: 500 U, UNK
     Route: 042
     Dates: start: 19971120, end: 19971120
  8. HEPARIN [Concomitant]
     Dosage: 640 MG, UNK
     Route: 042
     Dates: start: 19971120, end: 19971120
  9. OMNIPAQUE 140 [Concomitant]
     Dosage: 136 ML, UNK
     Dates: start: 19971120, end: 19971120
  10. ANCEF [Concomitant]
     Dosage: 1 G, UNK
     Route: 042
     Dates: start: 19971120, end: 19971120
  11. VANCOMYCIN [Concomitant]
     Dosage: 2 G, UNK
     Route: 042
     Dates: start: 19971120, end: 19971120
  12. PLASMALYTE [GLUCOSE,POTASSIUM CHLORIDE] [Concomitant]
     Dosage: 1000 ML, UNK
     Route: 042
     Dates: start: 19971120, end: 19971120
  13. PROTAMINE SULFATE [Concomitant]
     Dosage: 350 MG, UNK
     Route: 042
     Dates: start: 19971120, end: 19971120

REACTIONS (13)
  - DEPRESSION [None]
  - FEAR [None]
  - ADVERSE EVENT [None]
  - RENAL FAILURE [None]
  - PAIN [None]
  - ANHEDONIA [None]
  - INJURY [None]
  - RENAL INJURY [None]
  - EMOTIONAL DISORDER [None]
  - DEATH [None]
  - ANXIETY [None]
  - UNEVALUABLE EVENT [None]
  - STRESS [None]
